FAERS Safety Report 4982684-2 (Version None)
Quarter: 2006Q2

REPORT INFORMATION
  Report Type: 
  Country: None (occurrence: None)
  Receive Date: 20060420
  Receipt Date: 20060412
  Transmission Date: 20061013
  Serious: Yes (Other)
  Sender: FDA-Public Use
  Company Number: 223133

PATIENT
  Age: 53 Year
  Sex: Female
  Weight: 79.8 kg

DRUGS (12)
  1. RAPTIVA [Suspect]
     Indication: PSORIASIS
     Dosage: 80 MG
     Dates: start: 20050901
  2. RAPTIVA [Suspect]
     Indication: PSORIASIS
     Dosage: 80 MG
     Dates: start: 20050914
  3. PREDNISONE TAB [Concomitant]
  4. TRIAMCINOLONE [Concomitant]
  5. HYDROPHILIC OINTMENT (HYDROPHILIC OINTMENT) [Concomitant]
  6. LORATADINE [Concomitant]
  7. LIPITOR [Concomitant]
  8. IBUPROFEN [Concomitant]
  9. ALPRAZOLAM [Concomitant]
  10. AMITRIPTYLINE HCL [Concomitant]
  11. CARISOPRODOL [Concomitant]
  12. FLONASE [Concomitant]

REACTIONS (9)
  - ABDOMINAL PAIN [None]
  - BACK PAIN [None]
  - CONDITION AGGRAVATED [None]
  - FACIAL PALSY [None]
  - LYMPHADENOPATHY [None]
  - MYALGIA [None]
  - PSORIASIS [None]
  - SINUSITIS [None]
  - UPPER RESPIRATORY TRACT INFECTION [None]
